FAERS Safety Report 8474384-1 (Version None)
Quarter: 2012Q2

REPORT INFORMATION
  Report Type: 
  Country: None (occurrence: None)
  Receive Date: 20120628
  Receipt Date: 20120223
  Transmission Date: 20120825
  Serious: No
  Sender: FDA-Public Use
  Company Number: US-MYLANLABS-2012S1004400

PATIENT
  Sex: Male

DRUGS (2)
  1. CLOZAPINE [Suspect]
     Route: 048
     Dates: end: 20111201
  2. CLOZAPINE [Suspect]
     Route: 048
     Dates: end: 20111201

REACTIONS (1)
  - DRUG HYPERSENSITIVITY [None]
